FAERS Safety Report 4879646-2 (Version None)
Quarter: 2006Q1

REPORT INFORMATION
  Report Type: 
  Country: None (occurrence: None)
  Receive Date: 20060111
  Receipt Date: 20051227
  Transmission Date: 20060701
  Serious: Yes (Hospitalization)
  Sender: FDA-Public Use
  Company Number: FR200512004134

PATIENT
  Age: 83 Year
  Sex: Female

DRUGS (5)
  1. PROZAC [Suspect]
     Indication: DYSTHYMIC DISORDER
     Dosage: 20 G, DAILY (1/D), ORAL
     Route: 048
     Dates: start: 20050906, end: 20050927
  2. ASPIRIN [Concomitant]
  3. FOSAMAX [Concomitant]
  4. OROCAL D(3) (CALCIUM CARBONATE, COLECALCIFEROL) [Concomitant]
  5. CLONAZEPAM [Concomitant]

REACTIONS (6)
  - DIVERTICULUM INTESTINAL [None]
  - GASTRITIS [None]
  - GASTRODUODENAL HAEMORRHAGE [None]
  - HIATUS HERNIA [None]
  - IRON DEFICIENCY ANAEMIA [None]
  - MICROCYTIC ANAEMIA [None]
